FAERS Safety Report 13934627 (Version 2)
Quarter: 2017Q4

REPORT INFORMATION
  Report Type: Report from Study
  Country: US (occurrence: US)
  Receive Date: 20170905
  Receipt Date: 20171218
  Transmission Date: 20180320
  Serious: Yes (Death)
  Sender: FDA-Public Use
  Company Number: US-ROCHE-1960348

PATIENT
  Age: 76 Year
  Sex: Male
  Weight: 90.8 kg

DRUGS (18)
  1. BENZONATE (UNK INGREDIENTS) [Concomitant]
     Route: 065
  2. ALBUTEROL. [Concomitant]
     Active Substance: ALBUTEROL
     Route: 065
  3. PROCRIT [Concomitant]
     Active Substance: ERYTHROPOIETIN
     Dosage: 60,000 A WEEK SINCE APRIL 2017
     Route: 065
     Dates: start: 201704
  4. ESBRIET [Suspect]
     Active Substance: PIRFENIDONE
     Dosage: 3 CAPSULES 3 TIMES A DAY
     Route: 048
     Dates: start: 20170606
  5. LOSARTAN POTASSIUM. [Concomitant]
     Active Substance: LOSARTAN POTASSIUM
     Route: 065
  6. METOPROLOL. [Concomitant]
     Active Substance: METOPROLOL
     Indication: BLOOD PRESSURE MEASUREMENT
     Dosage: 25MG IN THE MORNING AND AT NIGHT FOR SEVERAL YEARS
     Route: 048
  7. LOPRESSOR [Concomitant]
     Active Substance: METOPROLOL TARTRATE
     Route: 065
  8. NEUPOGEN [Concomitant]
     Active Substance: FILGRASTIM
     Dosage: 1 INJECTION A WEEK SINCE APRIL 2017
     Route: 065
     Dates: start: 201704
  9. LIPITOR [Concomitant]
     Active Substance: ATORVASTATIN CALCIUM
     Indication: BLOOD CHOLESTEROL
     Dosage: 80 MG AT NIGHT FOR SEVERAL YEARS
     Route: 048
  10. BUMETANIDE. [Concomitant]
     Active Substance: BUMETANIDE
     Route: 065
  11. XARELTO [Concomitant]
     Active Substance: RIVAROXABAN
     Indication: ANTICOAGULANT THERAPY
     Route: 048
     Dates: start: 2016
  12. ATORVASTATIN CALCIUM. [Concomitant]
     Active Substance: ATORVASTATIN CALCIUM
     Route: 065
  13. ESBRIET [Suspect]
     Active Substance: PIRFENIDONE
     Indication: IDIOPATHIC PULMONARY FIBROSIS
     Dosage: THREE 267MG THREE TIMES A DAY
     Route: 048
     Dates: start: 201705
  14. LOSARTAN. [Concomitant]
     Active Substance: LOSARTAN
     Route: 065
  15. FOLIC ACID. [Concomitant]
     Active Substance: FOLIC ACID
     Route: 065
  16. ASPIRIN. [Concomitant]
     Active Substance: ASPIRIN
     Route: 065
  17. LOSARTAN. [Concomitant]
     Active Substance: LOSARTAN
     Indication: BLOOD PRESSURE MEASUREMENT
     Dosage: 12 MG IN THE MORNING FOR SEVERAL YEARS
     Route: 048
  18. VITAMIN C [Concomitant]
     Active Substance: ASCORBIC ACID
     Route: 065

REACTIONS (6)
  - Decreased appetite [Not Recovered/Not Resolved]
  - Death [Fatal]
  - Cough [Unknown]
  - Rash [Not Recovered/Not Resolved]
  - Gait disturbance [Not Recovered/Not Resolved]
  - Weight decreased [Not Recovered/Not Resolved]

NARRATIVE: CASE EVENT DATE: 201708
